FAERS Safety Report 13543318 (Version 3)
Quarter: 2017Q3

REPORT INFORMATION
  Report Type: Spontaneous
  Country: JP (occurrence: JP)
  Receive Date: 20170514
  Receipt Date: 20170827
  Transmission Date: 20171127
  Serious: Yes (Hospitalization)
  Sender: FDA-Public Use
  Company Number: PHJP2017JP002483

PATIENT
  Age: 47 Year
  Sex: Male

DRUGS (10)
  1. COSENTYX [Suspect]
     Active Substance: SECUKINUMAB
     Dosage: 300 MG, QMO
     Route: 058
     Dates: start: 20170426, end: 20170426
  2. CORTRIL [Concomitant]
     Active Substance: HYDROCORTISONE
     Indication: ADRENAL INSUFFICIENCY
     Dosage: 5 MG, QD
     Route: 048
     Dates: start: 201611
  3. COSENTYX [Suspect]
     Active Substance: SECUKINUMAB
     Dosage: 300 MG (ADMINISTRATION)
     Route: 058
     Dates: start: 20170104
  4. WHITE PETROLATUM [Concomitant]
     Active Substance: PETROLATUM
     Indication: PUSTULAR PSORIASIS
     Dosage: UNK
     Route: 065
  5. ALMETA [Concomitant]
     Active Substance: ALCLOMETASONE DIPROPIONATE
     Indication: PUSTULAR PSORIASIS
     Dosage: UNK
     Route: 065
     Dates: end: 201701
  6. OXAROL [Concomitant]
     Active Substance: MAXACALCITOL
     Indication: PUSTULAR PSORIASIS
     Dosage: 25 UG, UNK
     Route: 065
     Dates: end: 201701
  7. COSENTYX [Suspect]
     Active Substance: SECUKINUMAB
     Indication: PUSTULAR PSORIASIS
     Dosage: 300 MG, QW
     Route: 058
     Dates: start: 201611
  8. TRIAZOLAM. [Concomitant]
     Active Substance: TRIAZOLAM
     Indication: INSOMNIA
     Dosage: 25 MG, QD
     Route: 048
     Dates: start: 201611
  9. FEBURIC [Concomitant]
     Active Substance: FEBUXOSTAT
     Indication: HYPERURICAEMIA
     Dosage: 10 MG, QD
     Route: 048
     Dates: start: 201611
  10. HIRUDOID [Concomitant]
     Active Substance: GLYCOSAMINOGLYCANS
     Indication: ASTEATOSIS
     Dosage: Q.S., BID
     Route: 062
     Dates: start: 201611

REACTIONS (7)
  - Malaise [Recovered/Resolved]
  - Weight decreased [Recovering/Resolving]
  - Feeding disorder [Recovering/Resolving]
  - Feeling abnormal [Recovering/Resolving]
  - Decreased appetite [Recovered/Resolved]
  - Pyrexia [Recovering/Resolving]
  - Blood pressure decreased [Recovering/Resolving]

NARRATIVE: CASE EVENT DATE: 20170110
